FAERS Safety Report 10380599 (Version 1)
Quarter: 2014Q1

REPORT INFORMATION
  Report Type: Spontaneous
  Country: US (occurrence: None)
  Receive Date: 20140306
  Receipt Date: 20140306
  Transmission Date: 20141002
  Serious: Yes (Other)
  Sender: FDA-Public Use
  Company Number: 163-21880-13063316

PATIENT
  Age: 86 Year
  Sex: Male
  Weight: 75.3 kg

DRUGS (9)
  1. REVLIMID [Suspect]
     Indication: MYELODYSPLASTIC SYNDROME
     Route: 048
     Dates: start: 201108
  2. CENTRUM SILVER [Concomitant]
  3. CELEBREX (CELECOXIB) [Concomitant]
  4. CARVEDILOL [Concomitant]
  5. LORTAB [Concomitant]
  6. OMEPRAZOLE [Concomitant]
  7. NORVASC (AMLODIPINE BESILATE) [Concomitant]
  8. CRESTOR (ROSUVASTATIN) [Concomitant]
  9. DONEPEZIL [Concomitant]

REACTIONS (5)
  - Eye discharge [None]
  - Muscle spasms [None]
  - Nasal congestion [None]
  - Cough [None]
  - Rhinorrhoea [None]
